FAERS Safety Report 10010532 (Version 1)
Quarter: 2014Q1

REPORT INFORMATION
  Report Type: Spontaneous
  Country: FR (occurrence: FR)
  Receive Date: 20140314
  Receipt Date: 20140314
  Transmission Date: 20141002
  Serious: Yes (Other)
  Sender: FDA-Public Use
  Company Number: FR-BRISTOL-MYERS SQUIBB COMPANY-20410015

PATIENT
  Age: 68 Year
  Sex: Male

DRUGS (14)
  1. ERBITUX SOLN FOR INF [Suspect]
     Indication: SQUAMOUS CELL CARCINOMA OF THE ORAL CAVITY
     Dosage: MAY12-JUL12,AUG12,07JAN14
     Route: 042
     Dates: start: 201205
  2. CARBOPLATIN [Suspect]
     Indication: SQUAMOUS CELL CARCINOMA OF THE ORAL CAVITY
     Dosage: CARBOPLATIN HOSPIRA
     Route: 042
     Dates: start: 20140107
  3. FLUOROURACIL [Suspect]
     Indication: SQUAMOUS CELL CARCINOMA OF THE ORAL CAVITY
     Dosage: MAY12-JUL12,07JAN14
     Route: 042
     Dates: start: 201205
  4. LOVENOX [Suspect]
     Indication: CEREBROVASCULAR ACCIDENT
     Dosage: 16-18JAN14,21JAN14
     Route: 058
     Dates: start: 20140116
  5. DEPAKINE [Concomitant]
  6. INEXIUM [Concomitant]
  7. KARDEGIC [Concomitant]
     Dosage: POWDER AND SOLVENT FOR ORAL SOLUTION
  8. DUROGESIC [Concomitant]
     Dosage: 2.1 MG/5.25 CM2
     Route: 062
  9. MIDAZOLAM [Concomitant]
  10. MORPHINE [Concomitant]
  11. AUGMENTIN [Concomitant]
  12. SOLUPRED [Concomitant]
  13. RIVOTRIL [Concomitant]
  14. INNOHEP [Concomitant]
     Indication: CEREBROVASCULAR ACCIDENT
     Dosage: 22JAN14
     Dates: start: 20140115

REACTIONS (1)
  - Thrombocytopenia [Recovered/Resolved]
